FAERS Safety Report 7292909-9 (Version None)
Quarter: 2011Q1

REPORT INFORMATION
  Report Type: 
  Country: None (occurrence: None)
  Receive Date: 20110204
  Receipt Date: 20110128
  Transmission Date: 20110831
  Serious: Yes (Life-Threatening, Hospitalization, Disabling, Other)
  Sender: FDA-Public Use
  Company Number: 2010SP012145

PATIENT
  Age: 23 Year
  Sex: Female
  Weight: 56.6996 kg

DRUGS (4)
  1. ADVAIR DISKUS 100/50 [Concomitant]
  2. ALBUTEROL [Concomitant]
  3. NUVARING [Suspect]
     Indication: CYST
     Dates: start: 20090112, end: 20090701
  4. NUVARING [Suspect]
     Indication: CONTRACEPTION
     Dates: start: 20090112, end: 20090701

REACTIONS (14)
  - GASTRIC HAEMORRHAGE [None]
  - RUPTURED ECTOPIC PREGNANCY [None]
  - DIZZINESS [None]
  - EMOTIONAL DISORDER [None]
  - HAEMORRHAGE [None]
  - BACK PAIN [None]
  - DEPRESSION [None]
  - DEEP VEIN THROMBOSIS [None]
  - HEADACHE [None]
  - COGNITIVE DISORDER [None]
  - BURNING SENSATION [None]
  - PARAESTHESIA [None]
  - MENTAL DISORDER [None]
  - ABDOMINAL PAIN [None]
